FAERS Safety Report 8241570-5 (Version None)
Quarter: 2012Q1

REPORT INFORMATION
  Report Type: 
  Country: None (occurrence: None)
  Receive Date: 20120328
  Receipt Date: 20120302
  Transmission Date: 20120608
  Serious: Yes (Hospitalization, Other)
  Sender: FDA-Public Use
  Company Number: JP-BAYER-2012-018606

PATIENT
  Age: 40 Year
  Sex: Male

DRUGS (13)
  1. LANSOPRAZOLE [Suspect]
     Dosage: DAILY DOSE 15 MG
     Route: 048
     Dates: start: 20120202, end: 20120221
  2. CARVEDILOL [Suspect]
     Dosage: DAILY DOSE 5 MG
     Route: 048
     Dates: start: 20120215, end: 20120221
  3. NOVO HEPARIN CALCIUM [Concomitant]
     Dosage: UNK
     Route: 042
     Dates: start: 20120201
  4. ASPIRIN [Suspect]
     Indication: MYOCARDIAL INFARCTION
     Dosage: 100 MG, QD
     Route: 048
     Dates: start: 20120202
  5. ANPLAG [Concomitant]
     Dosage: UNK
     Route: 048
     Dates: start: 20120222
  6. PLAVIX [Suspect]
     Dosage: UNK
     Route: 048
     Dates: start: 20120202, end: 20120221
  7. ANTEBATE [Concomitant]
     Indication: ECZEMA
     Dosage: UNK
     Route: 061
     Dates: start: 20120209
  8. LANTUS [Concomitant]
     Dosage: UNK
     Route: 042
     Dates: start: 20120201
  9. LIPITOR [Suspect]
     Dosage: UNK
     Route: 048
     Dates: start: 20120202, end: 20120221
  10. CANDESARTAN CILEXETIL [Suspect]
     Dosage: DAILY DOSE 8 MG
     Route: 048
     Dates: start: 20120202, end: 20120221
  11. SIGMART [Suspect]
     Dosage: DAILY DOSE 15 MG
     Route: 048
     Dates: start: 20120202, end: 20120221
  12. CEFAZOLIN [Concomitant]
     Dosage: UNK
     Route: 042
     Dates: start: 20120201
  13. PLETAL [Concomitant]
     Dosage: UNK
     Route: 048
     Dates: start: 20120222

REACTIONS (1)
  - TOXIC SKIN ERUPTION [None]
